FAERS Safety Report 12503844 (Version 1)
Quarter: 2016Q2

REPORT INFORMATION
  Report Type: Other
  Country: IE (occurrence: IE)
  Receive Date: 20160628
  Receipt Date: 20160628
  Transmission Date: 20160815
  Serious: Yes (Hospitalization)
  Sender: FDA-Public Use
  Company Number: IE-ENDO PHARMACEUTICALS INC-2016-004186

PATIENT
  Age: 29 Year
  Sex: Male

DRUGS (1)
  1. TESTIM [Suspect]
     Active Substance: TESTOSTERONE
     Indication: STEROID THERAPY
     Route: 065

REACTIONS (3)
  - Tendon rupture [Recovered/Resolved]
  - Drug abuse [Unknown]
  - Ligament rupture [Recovered/Resolved]
